FAERS Safety Report 8217839-7 (Version None)
Quarter: 2012Q1

REPORT INFORMATION
  Report Type: 
  Country: None (occurrence: None)
  Receive Date: 20120319
  Receipt Date: 20120309
  Transmission Date: 20120608
  Serious: Yes (Other)
  Sender: FDA-Public Use
  Company Number: US-JNJFOC-20120306883

PATIENT
  Age: 75 Year
  Sex: Male

DRUGS (2)
  1. RISPERDAL CONSTA [Suspect]
     Indication: SCHIZOPHRENIA
     Route: 030
  2. UNKNOWN MEDICATION [Concomitant]

REACTIONS (3)
  - OVERDOSE [None]
  - GENERAL PHYSICAL HEALTH DETERIORATION [None]
  - SEDATION [None]
